FAERS Safety Report 10244956 (Version 2)
Quarter: 2014Q2

REPORT INFORMATION
  Report Type: Spontaneous
  Country: US (occurrence: US)
  Receive Date: 20140618
  Receipt Date: 20140618
  Transmission Date: 20141212
  Serious: No
  Sender: FDA-Public Use
  Company Number: US-GALDERMA-US14000737

PATIENT
  Age: 39 Year
  Sex: Male

DRUGS (2)
  1. MIRVASO (BRIMONIDINE) TOPICAL GEL, 0.33% [Suspect]
     Indication: ROSACEA
     Dosage: 0.33%
     Route: 061
     Dates: start: 201401, end: 201401
  2. NEUTROGENA ON FACE MOISTURIZER SPF15 [Concomitant]
     Route: 061
     Dates: start: 2012

REACTIONS (7)
  - Condition aggravated [Not Recovered/Not Resolved]
  - Photosensitivity reaction [Recovering/Resolving]
  - Skin irritation [Recovering/Resolving]
  - Erythema [Recovering/Resolving]
  - Skin burning sensation [Recovered/Resolved]
  - Dermatitis [Recovering/Resolving]
  - Drug ineffective [Not Recovered/Not Resolved]
